FAERS Safety Report 5254114-7 (Version None)
Quarter: 2007Q1

REPORT INFORMATION
  Report Type: 
  Country: None (occurrence: None)
  Receive Date: 20070302
  Receipt Date: 20070227
  Transmission Date: 20070707
  Serious: Yes (Other)
  Sender: FDA-Public Use
  Company Number: 2007UW03705

PATIENT
  Age: 58 Year
  Sex: Female

DRUGS (4)
  1. ARIMIDEX [Suspect]
     Indication: BREAST CANCER
     Route: 048
     Dates: start: 20050101
  2. PROTONIX [Concomitant]
  3. CHEMOTHERAPY [Concomitant]
     Indication: BREAST CANCER
  4. STEROIDS [Concomitant]

REACTIONS (4)
  - ARTHRALGIA [None]
  - JOINT INJURY [None]
  - MYALGIA [None]
  - WEIGHT INCREASED [None]
